FAERS Safety Report 8817095 (Version 1)
Quarter: 2012Q4

REPORT INFORMATION
  Report Type: Spontaneous
  Country: US (occurrence: None)
  Receive Date: 20121003
  Receipt Date: 20121003
  Transmission Date: 20130627
  Serious: Yes (Other)
  Sender: FDA-Public Use
  Company Number: None

PATIENT
  Age: 38 Year
  Sex: Female
  Weight: 91.63 kg

DRUGS (1)
  1. BEYAZ BAYER [Suspect]
     Indication: PREMENSTRUAL DYSPHORIC DISORDER
     Dosage: 1 pill daily po
     Route: 048
     Dates: start: 20110820, end: 20111202

REACTIONS (1)
  - Pulmonary embolism [None]
